FAERS Safety Report 12405522 (Version 1)
Quarter: 2016Q2

REPORT INFORMATION
  Report Type: Spontaneous
  Country: US (occurrence: US)
  Receive Date: 20160525
  Receipt Date: 20160525
  Transmission Date: 20160815
  Serious: Yes (Hospitalization, Other)
  Sender: FDA-Public Use
  Company Number: US-LUPIN PHARMACEUTICALS INC.-E2B_00005450

PATIENT
  Age: 34 Year
  Sex: Female
  Weight: 52.21 kg

DRUGS (5)
  1. VIRTPREX [Concomitant]
     Indication: PRODUCT USED FOR UNKNOWN INDICATION
     Route: 048
  2. ESCITALOPRAM TABLETS USP 10MG [Suspect]
     Active Substance: ESCITALOPRAM OXALATE
     Route: 048
     Dates: start: 20160424, end: 20160428
  3. ESCITALOPRAM TABLETS USP 10MG [Suspect]
     Active Substance: ESCITALOPRAM OXALATE
     Route: 048
     Dates: start: 20160429, end: 20160506
  4. ESCITALOPRAM TABLETS USP 10MG [Suspect]
     Active Substance: ESCITALOPRAM OXALATE
     Route: 048
     Dates: start: 20160507, end: 20160508
  5. ESCITALOPRAM TABLETS USP 10MG [Suspect]
     Active Substance: ESCITALOPRAM OXALATE
     Indication: ANXIETY
     Route: 048
     Dates: start: 20160331, end: 20160422

REACTIONS (6)
  - Sleep paralysis [Recovered/Resolved]
  - Sinusitis [Not Recovered/Not Resolved]
  - Mania [Unknown]
  - Agitation [Not Recovered/Not Resolved]
  - Tachyphrenia [Not Recovered/Not Resolved]
  - Insomnia [Not Recovered/Not Resolved]

NARRATIVE: CASE EVENT DATE: 20160406
